FAERS Safety Report 6328274-0 (Version None)
Quarter: 2009Q3

REPORT INFORMATION
  Report Type: 
  Country: None (occurrence: None)
  Receive Date: 20090825
  Receipt Date: 20090518
  Transmission Date: 20100115
  Serious: No
  Sender: FDA-Public Use
  Company Number: US-ABBOTT-09P-163-0575212-00

PATIENT
  Sex: Female
  Weight: 95.34 kg

DRUGS (5)
  1. SYNTHROID [Suspect]
     Indication: AUTOIMMUNE THYROIDITIS
     Route: 048
     Dates: start: 19670101, end: 20090401
  2. ENZYME SUPPLEMENTS [Concomitant]
     Indication: DRUG USE FOR UNKNOWN INDICATION
     Route: 048
  3. FISH OIL [Concomitant]
     Indication: DRUG USE FOR UNKNOWN INDICATION
  4. COMPLETE VITAMIN B SUPPLEMENT [Concomitant]
     Indication: DRUG USE FOR UNKNOWN INDICATION
  5. LEVOTHYROXINE SODIUM [Concomitant]
     Indication: AUTOIMMUNE THYROIDITIS
     Dates: start: 20090401

REACTIONS (12)
  - ALOPECIA [None]
  - ARTHRALGIA [None]
  - BODY HEIGHT DECREASED [None]
  - BURSITIS [None]
  - DRUG INEFFECTIVE [None]
  - MADAROSIS [None]
  - MYALGIA [None]
  - ONYCHOCLASIS [None]
  - PARAESTHESIA [None]
  - SKIN EXFOLIATION [None]
  - VISUAL IMPAIRMENT [None]
  - WEIGHT INCREASED [None]
